FAERS Safety Report 13346133 (Version 2)
Quarter: 2017Q2

REPORT INFORMATION
  Report Type: Report from Study
  Country: CA (occurrence: CA)
  Receive Date: 20170317
  Receipt Date: 20170505
  Transmission Date: 20170830
  Serious: Yes (Hospitalization, Other)
  Sender: FDA-Public Use
  Company Number: CA-AMGEN-CANSL2017038091

PATIENT
  Age: 73 Year
  Sex: Female
  Weight: 60.2 kg

DRUGS (5)
  1. PROLIA [Suspect]
     Active Substance: DENOSUMAB
     Indication: OSTEOPOROSIS POSTMENOPAUSAL
     Dosage: UNK, Q6MO
     Route: 058
     Dates: start: 20150107
  2. PROLIA [Suspect]
     Active Substance: DENOSUMAB
     Dosage: UNK
     Route: 058
  3. PROLIA [Suspect]
     Active Substance: DENOSUMAB
     Dosage: UNK
     Route: 058
  4. PROLIA [Suspect]
     Active Substance: DENOSUMAB
     Dosage: UNK
     Route: 058
  5. PROLIA [Suspect]
     Active Substance: DENOSUMAB
     Dosage: UNK
     Route: 058

REACTIONS (2)
  - Cerebrovascular accident [Recovered/Resolved]
  - Bone pain [Not Recovered/Not Resolved]

NARRATIVE: CASE EVENT DATE: 201611
